FAERS Safety Report 4325840-9 (Version None)
Quarter: 2004Q1

REPORT INFORMATION
  Report Type: 
  Country: None (occurrence: None)
  Receive Date: 20040323
  Receipt Date: 20040308
  Transmission Date: 20041129
  Serious: Yes (Death)
  Sender: FDA-Public Use
  Company Number: US-JNJFOC-20040302192

PATIENT
  Age: 82 Year
  Sex: Male

DRUGS (5)
  1. DITROPAN XL [Suspect]
     Dosage: 10 MG, ORAL
     Route: 048
     Dates: start: 20030201, end: 20030901
  2. PROZAC [Concomitant]
  3. EXELON [Concomitant]
  4. RESTORIL [Concomitant]
  5. MULTIVITAMIN [Concomitant]

REACTIONS (1)
  - PHARMACEUTICAL PRODUCT COMPLAINT [None]
